FAERS Safety Report 7353143-7 (Version None)
Quarter: 2011Q1

REPORT INFORMATION
  Report Type: 
  Country: None (occurrence: None)
  Receive Date: 20110315
  Receipt Date: 20110303
  Transmission Date: 20110831
  Serious: Yes (Hospitalization, Other)
  Sender: FDA-Public Use
  Company Number: JP-ASTRAZENECA-2008AP00367

PATIENT
  Sex: Male
  Weight: 9 kg

DRUGS (288)
  1. VENTOLIN [Concomitant]
     Route: 055
     Dates: start: 20080714, end: 20080714
  2. INTAL [Concomitant]
     Dosage: AS REQUIRED, 1A/DAY
     Route: 055
     Dates: start: 20080213, end: 20100730
  3. MUCODYNE [Concomitant]
     Indication: PNEUMONIA
     Route: 048
     Dates: start: 20070604, end: 20070703
  4. MUCODYNE [Concomitant]
     Route: 048
     Dates: start: 20071022, end: 20071028
  5. BIOFERMIN R [Concomitant]
     Route: 048
     Dates: start: 20070831, end: 20070903
  6. BIOFERMIN R [Concomitant]
     Route: 048
     Dates: start: 20070907, end: 20070913
  7. BIOFERMIN R [Concomitant]
     Route: 048
     Dates: start: 20071206, end: 20080105
  8. BIOFERMIN R [Concomitant]
     Route: 048
     Dates: start: 20071206, end: 20080105
  9. BIOFERMIN R [Concomitant]
     Route: 048
     Dates: start: 20080626, end: 20080629
  10. BIOFERMIN R [Concomitant]
     Route: 048
     Dates: start: 20080914, end: 20080927
  11. BIOFERMIN R [Concomitant]
     Route: 048
     Dates: start: 20081104, end: 20081115
  12. BIOFERMIN R [Concomitant]
     Route: 048
     Dates: start: 20090408, end: 20090412
  13. BIOFERMIN R [Concomitant]
     Route: 048
     Dates: start: 20090518, end: 20090523
  14. BIOFERMIN R [Concomitant]
     Route: 048
     Dates: start: 20090712, end: 20090722
  15. MEIACT [Concomitant]
     Indication: PHARYNGITIS
     Route: 048
     Dates: start: 20070608, end: 20070613
  16. MEIACT [Concomitant]
     Route: 048
     Dates: start: 20071022, end: 20071028
  17. MEIACT [Concomitant]
     Route: 048
     Dates: start: 20071220, end: 20080107
  18. MEIACT [Concomitant]
     Route: 048
     Dates: start: 20090111, end: 20090121
  19. KLARICID:DRYSYRUP [Concomitant]
     Indication: PNEUMONIA
     Route: 048
     Dates: start: 20070613, end: 20070620
  20. KLARICID:DRYSYRUP [Concomitant]
     Route: 048
     Dates: start: 20081114, end: 20090220
  21. KLARICID:DRYSYRUP [Concomitant]
     Route: 048
     Dates: start: 20081114, end: 20090220
  22. KLARICID:DRYSYRUP [Concomitant]
     Route: 048
     Dates: start: 20081114, end: 20090220
  23. KLARICID:DRYSYRUP [Concomitant]
     Route: 048
     Dates: start: 20081114, end: 20090220
  24. KLARICID:DRYSYRUP [Concomitant]
     Route: 048
     Dates: start: 20091022, end: 20091027
  25. KLARICID:DRYSYRUP [Concomitant]
     Route: 048
     Dates: start: 20100726, end: 20100730
  26. KLARICID:DRYSYRUP [Concomitant]
     Route: 048
     Dates: start: 20100726, end: 20100730
  27. MUCOSOLVAN DS FOR PEDIATRIC [Concomitant]
     Indication: ASTHMA
     Route: 048
     Dates: start: 20070709, end: 20070716
  28. MUCOSOLVAN DS FOR PEDIATRIC [Concomitant]
     Indication: BRONCHITIS
     Route: 048
     Dates: start: 20070709, end: 20070716
  29. MUCOSOLVAN DS FOR PEDIATRIC [Concomitant]
     Route: 048
     Dates: start: 20071210, end: 20080117
  30. MUCOSOLVAN DS FOR PEDIATRIC [Concomitant]
     Route: 048
     Dates: start: 20090113, end: 20090123
  31. MUCOSOLVAN DS FOR PEDIATRIC [Concomitant]
     Route: 048
     Dates: start: 20090113, end: 20090123
  32. BERACHIN:SYRUP [Concomitant]
     Route: 048
     Dates: start: 20071102, end: 20071203
  33. BERACHIN:SYRUP [Concomitant]
     Route: 048
     Dates: start: 20080625, end: 20080629
  34. SEISHOKU [Concomitant]
     Route: 041
     Dates: start: 20080914, end: 20080914
  35. SEISHOKU [Concomitant]
     Route: 041
     Dates: start: 20080914, end: 20080914
  36. ALPINY [Concomitant]
     Indication: PYREXIA
     Route: 054
     Dates: start: 20070810, end: 20070815
  37. CLAVAMOX [Concomitant]
     Indication: OTITIS MEDIA
     Route: 048
     Dates: start: 20070907, end: 20070913
  38. SAWACILLIN [Concomitant]
     Indication: TONSILLITIS
     Route: 048
     Dates: start: 20080422, end: 20080428
  39. FLOMAX [Concomitant]
     Route: 048
     Dates: start: 20090811, end: 20090816
  40. ZYRTEC [Concomitant]
     Indication: RHINITIS
     Route: 048
     Dates: start: 20090814, end: 20090821
  41. UNKNOWNDRUG [Concomitant]
     Dosage: 2L/MIN AS REQUIRED
     Route: 055
     Dates: start: 20081105, end: 20081105
  42. PULMICORT RESPULES [Suspect]
     Route: 055
     Dates: start: 20081125, end: 20081205
  43. PULMICORT RESPULES [Suspect]
     Route: 055
     Dates: start: 20090904, end: 20100608
  44. VENTOLIN [Concomitant]
     Indication: ASTHMA
     Route: 055
     Dates: start: 20070604, end: 20070615
  45. VENTOLIN [Concomitant]
     Route: 055
     Dates: start: 20090403, end: 20090411
  46. INTAL [Concomitant]
     Route: 055
     Dates: start: 20090403, end: 20090411
  47. BIOFERMIN R [Concomitant]
     Route: 048
     Dates: start: 20070816, end: 20070823
  48. BIOFERMIN R [Concomitant]
     Route: 048
     Dates: start: 20071009, end: 20071012
  49. BIOFERMIN R [Concomitant]
     Route: 048
     Dates: start: 20080422, end: 20080507
  50. BIOFERMIN R [Concomitant]
     Route: 048
     Dates: start: 20090430, end: 20090504
  51. BIOFERMIN R [Concomitant]
     Route: 048
     Dates: start: 20090811, end: 20090816
  52. BIOFERMIN R [Concomitant]
     Route: 048
     Dates: start: 20100726, end: 20100730
  53. BIOFERMIN R [Concomitant]
     Route: 048
     Dates: start: 20100726, end: 20100730
  54. MEIACT [Concomitant]
     Route: 048
     Dates: start: 20071022, end: 20071028
  55. MEIACT [Concomitant]
     Route: 048
     Dates: start: 20090430, end: 20090504
  56. MEIACT [Concomitant]
     Route: 048
     Dates: start: 20090430, end: 20090504
  57. MEIACT [Concomitant]
     Route: 048
     Dates: start: 20090430, end: 20090504
  58. MEIACT [Concomitant]
     Route: 048
     Dates: start: 20090518, end: 20090523
  59. TARIVID FOR OTIC USE [Concomitant]
     Route: 001
     Dates: start: 20071009, end: 20071012
  60. KLARICID:DRYSYRUP [Concomitant]
     Route: 048
     Dates: start: 20071210, end: 20071217
  61. KLARICID:DRYSYRUP [Concomitant]
     Route: 048
     Dates: start: 20091022, end: 20091027
  62. KLARICID:DRYSYRUP [Concomitant]
     Route: 048
     Dates: start: 20100219, end: 20100223
  63. KLARICID:DRYSYRUP [Concomitant]
     Route: 048
     Dates: start: 20100726, end: 20100730
  64. MUCOSOLVAN DS FOR PEDIATRIC [Concomitant]
     Route: 048
     Dates: start: 20071102, end: 20071203
  65. MUCOSOLVAN DS FOR PEDIATRIC [Concomitant]
     Route: 048
     Dates: start: 20080625, end: 20080629
  66. MUCOSOLVAN DS FOR PEDIATRIC [Concomitant]
     Route: 048
     Dates: start: 20080711, end: 20080725
  67. BERACHIN:SYRUP [Concomitant]
     Route: 048
     Dates: start: 20071210, end: 20080117
  68. BERACHIN:SYRUP [Concomitant]
     Route: 048
     Dates: start: 20080418, end: 20080514
  69. BERACHIN:SYRUP [Concomitant]
     Route: 048
     Dates: start: 20080625, end: 20080629
  70. BERACHIN:SYRUP [Concomitant]
     Route: 048
     Dates: start: 20081006, end: 20081013
  71. BERACHIN:SYRUP [Concomitant]
     Route: 048
     Dates: start: 20081024, end: 20081118
  72. BERACHIN:SYRUP [Concomitant]
     Dosage: NUMBER OF SEPARATE DOSAGES UNKNOWN
     Route: 048
     Dates: start: 20090202, end: 20090209
  73. SEISHOKU [Concomitant]
     Route: 041
     Dates: start: 20100729, end: 20100730
  74. CLAVAMOX [Concomitant]
     Route: 048
     Dates: start: 20091208, end: 20091215
  75. SAWACILLIN [Concomitant]
     Route: 048
     Dates: start: 20090712, end: 20090722
  76. VICCLOX [Concomitant]
     Indication: VARICELLA
     Route: 048
     Dates: start: 20081010, end: 20081017
  77. FLOMAX [Concomitant]
     Route: 048
     Dates: start: 20090811, end: 20090816
  78. TRANSAMIN [Concomitant]
     Indication: UPPER RESPIRATORY TRACT INFLAMMATION
     Route: 048
     Dates: start: 20091019, end: 20091023
  79. OFLOXACIN [Concomitant]
     Indication: CONJUNCTIVITIS
     Dosage: OPTIMAL DOSE
     Route: 047
     Dates: start: 20100319, end: 20100324
  80. UNKNOWNDRUG [Concomitant]
     Indication: ASTHMA
     Dosage: 2L/MIN AS REQUIRED
     Route: 055
     Dates: start: 20080914, end: 20080921
  81. MEPTIN [Concomitant]
     Route: 055
     Dates: start: 20090302, end: 20100730
  82. VENTOLIN [Concomitant]
     Route: 055
     Dates: start: 20080428, end: 20080503
  83. VENTOLIN [Concomitant]
     Route: 055
     Dates: start: 20080709, end: 20080711
  84. INTAL [Concomitant]
     Route: 055
     Dates: start: 20080627, end: 20080627
  85. MUCODYNE [Concomitant]
     Route: 048
     Dates: start: 20071022, end: 20071028
  86. MUCODYNE [Concomitant]
     Route: 048
     Dates: start: 20081114
  87. BIOFERMIN R [Concomitant]
     Route: 048
     Dates: start: 20070907, end: 20070913
  88. BIOFERMIN R [Concomitant]
     Route: 048
     Dates: start: 20071009, end: 20071012
  89. BIOFERMIN R [Concomitant]
     Route: 048
     Dates: start: 20071012, end: 20071016
  90. BIOFERMIN R [Concomitant]
     Route: 048
     Dates: start: 20080422, end: 20080507
  91. BIOFERMIN R [Concomitant]
     Route: 048
     Dates: start: 20081014, end: 20081018
  92. BIOFERMIN R [Concomitant]
     Route: 048
     Dates: start: 20090223, end: 20090228
  93. BIOFERMIN R [Concomitant]
     Route: 048
     Dates: start: 20090408, end: 20090412
  94. BIOFERMIN R [Concomitant]
     Route: 048
     Dates: start: 20090430, end: 20090504
  95. BIOFERMIN R [Concomitant]
     Route: 048
     Dates: start: 20090811, end: 20090816
  96. MEIACT [Concomitant]
     Route: 048
     Dates: start: 20071022, end: 20071028
  97. MEIACT [Concomitant]
     Route: 048
     Dates: start: 20080626, end: 20080629
  98. MEIACT [Concomitant]
     Route: 048
     Dates: start: 20090111, end: 20090121
  99. MEIACT [Concomitant]
     Route: 048
     Dates: start: 20090111, end: 20090121
  100. MEIACT [Concomitant]
     Route: 048
     Dates: start: 20090518, end: 20090523
  101. KLARICID:DRYSYRUP [Concomitant]
     Route: 048
     Dates: start: 20081114, end: 20090220
  102. KLARICID:DRYSYRUP [Concomitant]
     Route: 048
     Dates: start: 20100219, end: 20100223
  103. KLARICID:DRYSYRUP [Concomitant]
     Route: 048
     Dates: start: 20100726, end: 20100730
  104. MUCOSOLVAN DS FOR PEDIATRIC [Concomitant]
     Route: 048
     Dates: start: 20080418, end: 20080514
  105. MUCOSOLVAN DS FOR PEDIATRIC [Concomitant]
     Route: 048
     Dates: start: 20081024
  106. MUCOSOLVAN DS FOR PEDIATRIC [Concomitant]
     Route: 048
     Dates: start: 20090202, end: 20090209
  107. BERACHIN:SYRUP [Concomitant]
     Route: 048
     Dates: start: 20071012, end: 20071020
  108. BERACHIN:SYRUP [Concomitant]
     Route: 048
     Dates: start: 20071012, end: 20071020
  109. BERACHIN:SYRUP [Concomitant]
     Route: 048
     Dates: start: 20080227, end: 20080315
  110. BERACHIN:SYRUP [Concomitant]
     Route: 048
     Dates: start: 20090113, end: 20090123
  111. SEISHOKU [Concomitant]
     Indication: PROPHYLAXIS AGAINST DEHYDRATION
     Route: 041
     Dates: start: 20080714, end: 20080714
  112. SEISHOKU [Concomitant]
     Route: 041
     Dates: start: 20080914, end: 20080914
  113. SEISHOKU [Concomitant]
     Route: 041
     Dates: start: 20100729, end: 20100730
  114. KN-3B [Concomitant]
     Route: 041
     Dates: start: 20090403, end: 20090408
  115. SAWACILLIN [Concomitant]
     Route: 048
     Dates: start: 20090223, end: 20090228
  116. GLUCOSE [Concomitant]
     Indication: PROPHYLAXIS AGAINST DEHYDRATION
     Route: 041
     Dates: start: 20080914, end: 20080914
  117. CLAFORAN [Concomitant]
     Indication: PNEUMONIA
     Route: 041
     Dates: start: 20081104, end: 20081110
  118. CLAFORAN [Concomitant]
     Route: 041
     Dates: start: 20081207, end: 20081211
  119. PULMICORT RESPULES [Suspect]
     Indication: ASTHMA
     Route: 055
     Dates: start: 20070611, end: 20080203
  120. ONON DRYSYRUP [Concomitant]
     Route: 048
     Dates: start: 20070918, end: 20071224
  121. MEPTIN [Concomitant]
     Indication: PNEUMONIA
     Route: 048
     Dates: start: 20070604, end: 20070703
  122. VENTOLIN [Concomitant]
     Route: 055
     Dates: start: 20081104, end: 20081111
  123. BIOFERMIN R [Concomitant]
     Route: 048
     Dates: start: 20070831, end: 20070903
  124. BIOFERMIN R [Concomitant]
     Route: 048
     Dates: start: 20071012, end: 20071016
  125. BIOFERMIN R [Concomitant]
     Route: 048
     Dates: start: 20080422, end: 20080507
  126. BIOFERMIN R [Concomitant]
     Route: 048
     Dates: start: 20080626, end: 20080629
  127. BIOFERMIN R [Concomitant]
     Route: 048
     Dates: start: 20081104, end: 20081115
  128. BIOFERMIN R [Concomitant]
     Route: 048
     Dates: start: 20081104, end: 20081115
  129. BIOFERMIN R [Concomitant]
     Route: 048
     Dates: start: 20090223, end: 20090228
  130. BIOFERMIN R [Concomitant]
     Route: 048
     Dates: start: 20090712, end: 20090722
  131. BIOFERMIN R [Concomitant]
     Route: 048
     Dates: start: 20100726, end: 20100730
  132. MEIACT [Concomitant]
     Indication: PNEUMONIA
     Route: 048
     Dates: start: 20070608, end: 20070613
  133. MEIACT [Concomitant]
     Route: 048
     Dates: start: 20071009, end: 20071012
  134. MEIACT [Concomitant]
     Route: 048
     Dates: start: 20090518, end: 20090523
  135. KLARICID:DRYSYRUP [Concomitant]
     Indication: CHRONIC SINUSITIS
     Route: 048
     Dates: start: 20070613, end: 20070620
  136. KLARICID:DRYSYRUP [Concomitant]
     Indication: BRONCHITIS
     Route: 048
     Dates: start: 20070613, end: 20070620
  137. KLARICID:DRYSYRUP [Concomitant]
     Route: 048
     Dates: start: 20071210, end: 20071217
  138. KLARICID:DRYSYRUP [Concomitant]
     Route: 048
     Dates: start: 20071210, end: 20071217
  139. KLARICID:DRYSYRUP [Concomitant]
     Route: 048
     Dates: start: 20071210, end: 20071217
  140. KLARICID:DRYSYRUP [Concomitant]
     Route: 048
     Dates: start: 20071210, end: 20071217
  141. KLARICID:DRYSYRUP [Concomitant]
     Route: 048
     Dates: start: 20091022, end: 20091027
  142. MUCOSOLVAN DS FOR PEDIATRIC [Concomitant]
     Route: 048
     Dates: start: 20071210, end: 20080117
  143. MUCOSOLVAN DS FOR PEDIATRIC [Concomitant]
     Route: 048
     Dates: start: 20080625, end: 20080629
  144. MUCOSOLVAN DS FOR PEDIATRIC [Concomitant]
     Route: 048
     Dates: start: 20081024
  145. MUCOSOLVAN DS FOR PEDIATRIC [Concomitant]
     Route: 048
     Dates: start: 20090202, end: 20090209
  146. BERACHIN:SYRUP [Concomitant]
     Route: 048
     Dates: start: 20080418, end: 20080514
  147. BERACHIN:SYRUP [Concomitant]
     Route: 048
     Dates: start: 20080711, end: 20080725
  148. KN-3B [Concomitant]
     Indication: DEHYDRATION
     Route: 041
     Dates: start: 20071220, end: 20071228
  149. KN-3B [Concomitant]
     Route: 041
     Dates: start: 20080205, end: 20080210
  150. KN-3B [Concomitant]
     Route: 041
     Dates: start: 20090203, end: 20090205
  151. BESTRON [Concomitant]
     Indication: CONJUNCTIVITIS
     Dosage: OPTIMAL DOSE
     Route: 047
     Dates: start: 20090807, end: 20090812
  152. MEPTIN [Concomitant]
     Route: 055
     Dates: start: 20090302, end: 20100730
  153. VENTOLIN [Concomitant]
     Route: 055
     Dates: start: 20081207, end: 20081212
  154. INTAL [Concomitant]
     Route: 055
     Dates: start: 20080914, end: 20080924
  155. INTAL [Concomitant]
     Route: 055
     Dates: start: 20081207, end: 20081212
  156. MUCODYNE [Concomitant]
     Route: 048
     Dates: start: 20081114
  157. BIOFERMIN R [Concomitant]
     Indication: PROPHYLAXIS AGAINST DIARRHOEA
     Route: 048
     Dates: start: 20070608, end: 20070620
  158. BIOFERMIN R [Concomitant]
     Route: 048
     Dates: start: 20070816, end: 20070823
  159. BIOFERMIN R [Concomitant]
     Route: 048
     Dates: start: 20071012, end: 20071016
  160. BIOFERMIN R [Concomitant]
     Route: 048
     Dates: start: 20071022, end: 20071028
  161. BIOFERMIN R [Concomitant]
     Route: 048
     Dates: start: 20080626, end: 20080629
  162. BIOFERMIN R [Concomitant]
     Route: 048
     Dates: start: 20081014, end: 20081018
  163. BIOFERMIN R [Concomitant]
     Route: 048
     Dates: start: 20090430, end: 20090504
  164. MEIACT [Concomitant]
     Indication: BRONCHITIS
     Route: 048
     Dates: start: 20070608, end: 20070613
  165. MEIACT [Concomitant]
     Route: 048
     Dates: start: 20071009, end: 20071012
  166. MEIACT [Concomitant]
     Route: 048
     Dates: start: 20071009, end: 20071012
  167. MEIACT [Concomitant]
     Route: 048
     Dates: start: 20080502, end: 20080507
  168. MEIACT [Concomitant]
     Route: 048
     Dates: start: 20080502, end: 20080507
  169. MEIACT [Concomitant]
     Route: 048
     Dates: start: 20080626, end: 20080629
  170. MEIACT [Concomitant]
     Route: 048
     Dates: start: 20080626, end: 20080629
  171. MEIACT [Concomitant]
     Route: 048
     Dates: start: 20090518, end: 20090523
  172. TARIVID FOR OTIC USE [Concomitant]
     Indication: OTITIS MEDIA
     Route: 001
     Dates: start: 20070611, end: 20070618
  173. KLARICID:DRYSYRUP [Concomitant]
     Indication: OTITIS MEDIA
     Route: 048
     Dates: start: 20070613, end: 20070620
  174. KLARICID:DRYSYRUP [Concomitant]
     Indication: UPPER RESPIRATORY TRACT INFLAMMATION
     Route: 048
     Dates: start: 20070613, end: 20070620
  175. KLARICID:DRYSYRUP [Concomitant]
     Route: 048
     Dates: start: 20091022, end: 20091027
  176. KLARICID:DRYSYRUP [Concomitant]
     Route: 048
     Dates: start: 20100219, end: 20100223
  177. HOKUNALIN:TAPE [Concomitant]
     Indication: ASTHMA
     Dosage: NUMBER OF SEPARATE DOSAGES UNKNOWN
     Route: 062
     Dates: start: 20070616, end: 20070627
  178. BERACHIN:SYRUP [Concomitant]
     Indication: ASTHMA
     Route: 048
     Dates: start: 20070709, end: 20070716
  179. BERACHIN:SYRUP [Concomitant]
     Route: 048
     Dates: start: 20071102, end: 20071203
  180. BERACHIN:SYRUP [Concomitant]
     Route: 048
     Dates: start: 20081006, end: 20081013
  181. BERACHIN:SYRUP [Concomitant]
     Dosage: NUMBER OF SEPARATE DOSAGES UNKNOWN
     Route: 048
     Dates: start: 20090202, end: 20090209
  182. SEISHOKU [Concomitant]
     Indication: PSEUDOCROUP
     Route: 041
     Dates: start: 20080714, end: 20080714
  183. ALPINY [Concomitant]
     Route: 054
     Dates: start: 20071022, end: 20071026
  184. CLAVAMOX [Concomitant]
     Route: 048
     Dates: start: 20081110, end: 20081110
  185. KN-3B [Concomitant]
     Route: 041
     Dates: start: 20080107, end: 20080112
  186. SAWACILLIN [Concomitant]
     Indication: UPPER RESPIRATORY TRACT INFLAMMATION
     Route: 048
     Dates: start: 20080422, end: 20080428
  187. SAWACILLIN [Concomitant]
     Route: 048
     Dates: start: 20090712, end: 20090722
  188. FLOMAX [Concomitant]
     Indication: BRONCHITIS
     Route: 048
     Dates: start: 20081014, end: 20081018
  189. TAMIFLU:DRYSYRUP [Concomitant]
     Route: 048
     Dates: start: 20081204, end: 20081209
  190. PULMICORT RESPULES [Suspect]
     Route: 055
     Dates: start: 20080710, end: 20080711
  191. PULMICORT RESPULES [Suspect]
     Route: 055
     Dates: start: 20100609, end: 20100731
  192. INTAL [Concomitant]
     Route: 055
     Dates: start: 20070723, end: 20070724
  193. MUCODYNE [Concomitant]
     Indication: OTITIS MEDIA
     Route: 048
     Dates: start: 20070604, end: 20070703
  194. BIOFERMIN R [Concomitant]
     Route: 048
     Dates: start: 20071022, end: 20071028
  195. BIOFERMIN R [Concomitant]
     Route: 048
     Dates: start: 20071206, end: 20080105
  196. BIOFERMIN R [Concomitant]
     Route: 048
     Dates: start: 20080914, end: 20080927
  197. BIOFERMIN R [Concomitant]
     Route: 048
     Dates: start: 20090518, end: 20090523
  198. BIOFERMIN R [Concomitant]
     Route: 048
     Dates: start: 20090518, end: 20090523
  199. BIOFERMIN R [Concomitant]
     Route: 048
     Dates: start: 20091022, end: 20091027
  200. MEIACT [Concomitant]
     Indication: TONSILLITIS
     Route: 048
     Dates: start: 20070608, end: 20070613
  201. MEIACT [Concomitant]
     Route: 048
     Dates: start: 20071220, end: 20080107
  202. MEIACT [Concomitant]
     Route: 048
     Dates: start: 20071220, end: 20080107
  203. MEIACT [Concomitant]
     Route: 048
     Dates: start: 20071220, end: 20080107
  204. MEIACT [Concomitant]
     Route: 048
     Dates: start: 20090111, end: 20090121
  205. MEIACT [Concomitant]
     Route: 048
     Dates: start: 20090430, end: 20090504
  206. KLARICID:DRYSYRUP [Concomitant]
     Route: 048
     Dates: start: 20100219, end: 20100223
  207. KLARICID:DRYSYRUP [Concomitant]
     Route: 048
     Dates: start: 20100726, end: 20100730
  208. MUCOSOLVAN DS FOR PEDIATRIC [Concomitant]
     Route: 048
     Dates: start: 20071102, end: 20071203
  209. MUCOSOLVAN DS FOR PEDIATRIC [Concomitant]
     Route: 048
     Dates: start: 20081006, end: 20081013
  210. BERACHIN:SYRUP [Concomitant]
     Route: 048
     Dates: start: 20071210, end: 20080117
  211. KN-3B [Concomitant]
     Route: 041
     Dates: start: 20080428, end: 20080502
  212. KN-3B [Concomitant]
     Route: 041
     Dates: start: 20081207, end: 20081211
  213. KIPRES [Concomitant]
     Indication: ASTHMA
     Route: 048
     Dates: start: 20071225, end: 20080325
  214. ONON DRYSYRUP [Concomitant]
     Indication: ASTHMA
     Route: 048
     Dates: start: 20070604, end: 20070917
  215. MEPTIN [Concomitant]
     Indication: ASTHMA
     Route: 048
     Dates: start: 20070604, end: 20070703
  216. VENTOLIN [Concomitant]
     Route: 055
     Dates: start: 20070723, end: 20070724
  217. INTAL [Concomitant]
     Indication: ASTHMA
     Route: 055
     Dates: start: 20070604, end: 20070615
  218. INTAL [Concomitant]
     Route: 055
     Dates: start: 20080709, end: 20080711
  219. MUCODYNE [Concomitant]
     Route: 048
     Dates: start: 20071022, end: 20071028
  220. MUCODYNE [Concomitant]
     Route: 048
     Dates: start: 20081114
  221. BIOFERMIN R [Concomitant]
     Indication: DIARRHOEA
     Route: 048
     Dates: start: 20070608, end: 20070620
  222. BIOFERMIN R [Concomitant]
     Route: 048
     Dates: start: 20070816, end: 20070823
  223. BIOFERMIN R [Concomitant]
     Route: 048
     Dates: start: 20071022, end: 20071028
  224. BIOFERMIN R [Concomitant]
     Route: 048
     Dates: start: 20080914, end: 20080927
  225. BIOFERMIN R [Concomitant]
     Route: 048
     Dates: start: 20081014, end: 20081018
  226. BIOFERMIN R [Concomitant]
     Route: 048
     Dates: start: 20090408, end: 20090412
  227. BIOFERMIN R [Concomitant]
     Route: 048
     Dates: start: 20090712, end: 20090722
  228. BIOFERMIN R [Concomitant]
     Route: 048
     Dates: start: 20090811, end: 20090816
  229. MEIACT [Concomitant]
     Indication: OTITIS MEDIA
     Route: 048
     Dates: start: 20070608, end: 20070613
  230. MEIACT [Concomitant]
     Route: 048
     Dates: start: 20071009, end: 20071012
  231. MEIACT [Concomitant]
     Route: 048
     Dates: start: 20071022, end: 20071028
  232. MEIACT [Concomitant]
     Route: 048
     Dates: start: 20071220, end: 20080107
  233. MEIACT [Concomitant]
     Route: 048
     Dates: start: 20080502, end: 20080507
  234. MEIACT [Concomitant]
     Route: 048
     Dates: start: 20080626, end: 20080629
  235. MEIACT [Concomitant]
     Route: 048
     Dates: start: 20090111, end: 20090121
  236. MEIACT [Concomitant]
     Route: 048
     Dates: start: 20090518, end: 20090523
  237. BOSMIN [Concomitant]
     Dosage: AS REQUIRED, 0.1 ML/DAY (MIXED WITH NORMAL SALINE 2 ML)
     Route: 055
     Dates: start: 20100729, end: 20100730
  238. KLARICID:DRYSYRUP [Concomitant]
     Route: 048
     Dates: start: 20081114, end: 20090220
  239. KLARICID:DRYSYRUP [Concomitant]
     Route: 048
     Dates: start: 20100219, end: 20100223
  240. KLARICID:DRYSYRUP [Concomitant]
     Route: 048
     Dates: start: 20100219, end: 20100223
  241. KLARICID:DRYSYRUP [Concomitant]
     Route: 048
     Dates: start: 20100726, end: 20100730
  242. MUCOSOLVAN DS FOR PEDIATRIC [Concomitant]
     Route: 048
     Dates: start: 20080227, end: 20080315
  243. BERACHIN:SYRUP [Concomitant]
     Route: 048
     Dates: start: 20080227, end: 20080315
  244. BERACHIN:SYRUP [Concomitant]
     Route: 048
     Dates: start: 20081024, end: 20081118
  245. BERACHIN:SYRUP [Concomitant]
     Route: 048
     Dates: start: 20090507, end: 20090831
  246. BERACHIN:SYRUP [Concomitant]
     Route: 048
     Dates: start: 20090507, end: 20090831
  247. BERACHIN:SYRUP [Concomitant]
     Route: 048
     Dates: start: 20090113, end: 20090123
  248. SEISHOKU [Concomitant]
     Indication: ASTHMA
     Route: 041
     Dates: start: 20080714, end: 20080714
  249. KN-3B [Concomitant]
     Route: 041
     Dates: start: 20081104, end: 20081110
  250. SAWACILLIN [Concomitant]
     Route: 048
     Dates: start: 20090223, end: 20090228
  251. NEUZYM [Concomitant]
     Indication: UPPER RESPIRATORY TRACT INFLAMMATION
     Route: 048
     Dates: start: 20091019, end: 20091028
  252. PULMICORT RESPULES [Suspect]
     Route: 055
     Dates: start: 20080920, end: 20080923
  253. ONON DRYSYRUP [Concomitant]
     Route: 048
     Dates: start: 20080404
  254. VENTOLIN [Concomitant]
     Route: 055
     Dates: start: 20080627, end: 20080627
  255. VENTOLIN [Concomitant]
     Route: 055
     Dates: start: 20080914, end: 20080924
  256. MUCODYNE [Concomitant]
     Indication: ASTHMA
     Route: 048
     Dates: start: 20070604, end: 20070703
  257. BIOFERMIN R [Concomitant]
     Indication: ENTEROCOLITIS
     Route: 048
     Dates: start: 20070608, end: 20070620
  258. BIOFERMIN R [Concomitant]
     Route: 048
     Dates: start: 20070831, end: 20070903
  259. BIOFERMIN R [Concomitant]
     Route: 048
     Dates: start: 20070907, end: 20070913
  260. BIOFERMIN R [Concomitant]
     Route: 048
     Dates: start: 20071009, end: 20071012
  261. BIOFERMIN R [Concomitant]
     Route: 048
     Dates: start: 20090223, end: 20090228
  262. BIOFERMIN R [Concomitant]
     Route: 048
     Dates: start: 20091022, end: 20091027
  263. BIOFERMIN R [Concomitant]
     Route: 048
     Dates: start: 20091022, end: 20091027
  264. MEIACT [Concomitant]
     Route: 048
     Dates: start: 20071009, end: 20071012
  265. MEIACT [Concomitant]
     Route: 048
     Dates: start: 20071022, end: 20071028
  266. MEIACT [Concomitant]
     Route: 048
     Dates: start: 20080502, end: 20080507
  267. MEIACT [Concomitant]
     Route: 048
     Dates: start: 20080502, end: 20080507
  268. MEIACT [Concomitant]
     Route: 048
     Dates: start: 20080626, end: 20080629
  269. MEIACT [Concomitant]
     Route: 048
     Dates: start: 20090430, end: 20090504
  270. BOSMIN [Concomitant]
     Indication: PSEUDOCROUP
     Route: 055
     Dates: start: 20070610, end: 20070618
  271. KLARICID:DRYSYRUP [Concomitant]
     Indication: TONSILLITIS
     Route: 048
     Dates: start: 20070613, end: 20070620
  272. KLARICID:DRYSYRUP [Concomitant]
     Route: 048
     Dates: start: 20071210, end: 20071217
  273. KLARICID:DRYSYRUP [Concomitant]
     Route: 048
     Dates: start: 20091022, end: 20091027
  274. KLARICID:DRYSYRUP [Concomitant]
     Route: 048
     Dates: start: 20091022, end: 20091027
  275. HOKUNALIN:TAPE [Concomitant]
     Dosage: NUMBER OF SEPARATE DOSAGES UNKNOWN
     Route: 062
     Dates: start: 20071102, end: 20071203
  276. HOKUNALIN:TAPE [Concomitant]
     Route: 062
     Dates: start: 20080625, end: 20080629
  277. MUCOSOLVAN DS FOR PEDIATRIC [Concomitant]
     Route: 048
     Dates: start: 20080227, end: 20080315
  278. MUCOSOLVAN DS FOR PEDIATRIC [Concomitant]
     Route: 048
     Dates: start: 20080418, end: 20080514
  279. MUCOSOLVAN DS FOR PEDIATRIC [Concomitant]
     Route: 048
     Dates: start: 20080711, end: 20080725
  280. MUCOSOLVAN DS FOR PEDIATRIC [Concomitant]
     Route: 048
     Dates: start: 20081006, end: 20081013
  281. BERACHIN:SYRUP [Concomitant]
     Indication: BRONCHITIS
     Route: 048
     Dates: start: 20070709, end: 20070716
  282. BERACHIN:SYRUP [Concomitant]
     Route: 048
     Dates: start: 20080711, end: 20080725
  283. SEISHOKU [Concomitant]
     Route: 041
     Dates: start: 20100729, end: 20100730
  284. ZADITEN [Concomitant]
     Indication: RHINITIS ALLERGIC
     Route: 048
     Dates: start: 20080227, end: 20080305
  285. SOLU-MEDROL [Concomitant]
     Indication: ASTHMA
     Route: 041
     Dates: start: 20080916, end: 20080921
  286. FLOMAX [Concomitant]
     Indication: OTITIS MEDIA ACUTE
     Route: 048
     Dates: start: 20081014, end: 20081018
  287. BIOFERMIN [Concomitant]
     Indication: GASTROENTERITIS
     Route: 048
     Dates: start: 20090804, end: 20090809
  288. GASTER [Concomitant]
     Indication: REFLUX OESOPHAGITIS
     Route: 048
     Dates: start: 20091211

REACTIONS (9)
  - PNEUMONIA [None]
  - REFLUX OESOPHAGITIS [None]
  - CROUP INFECTIOUS [None]
  - SINUSITIS [None]
  - CONJUNCTIVITIS [None]
  - BRONCHITIS [None]
  - GASTROENTERITIS [None]
  - ACUTE TONSILLITIS [None]
  - RHINITIS [None]
